FAERS Safety Report 7474894-X (Version None)
Quarter: 2011Q2

REPORT INFORMATION
  Report Type: 
  Country: None (occurrence: None)
  Receive Date: 20110512
  Receipt Date: 20110509
  Transmission Date: 20111010
  Serious: Yes (Hospitalization)
  Sender: FDA-Public Use
  Company Number: FR-SHIRE-SPV1-2011-00761

PATIENT
  Sex: Female

DRUGS (3)
  1. ASPIRIN [Suspect]
     Indication: TRANSIENT ISCHAEMIC ATTACK
     Dosage: 75 MG, 1X/DAY:QD
     Route: 048
  2. PRITOR                             /01421801/ [Concomitant]
     Indication: HYPERTENSION
     Dosage: 40 MG, 1X/DAY:QD
     Route: 048
  3. ANAGRELIDE HYDROCHLORIDE [Suspect]
     Indication: THROMBOCYTOSIS
     Dosage: 3 MG, 1X/DAY:QD
     Route: 048

REACTIONS (2)
  - GINGIVAL BLEEDING [None]
  - HAEMATEMESIS [None]
